FAERS Safety Report 9323063 (Version 1)
Quarter: 2013Q2

REPORT INFORMATION
  Report Type: Spontaneous
  Country: US (occurrence: US)
  Receive Date: 20130603
  Receipt Date: 20130603
  Transmission Date: 20140414
  Serious: Yes (Other)
  Sender: FDA-Public Use
  Company Number: CHPA2013US008869

PATIENT
  Age: 51 Year
  Sex: Female

DRUGS (3)
  1. MAALOX ANTACID/ANTIGAS MS LIQ COOL MINT [Suspect]
     Indication: GASTRIC DISORDER
     Dosage: A COUPLE OF SWIGS, AS NEEDED
     Route: 048
  2. OMEPRAZOLE [Concomitant]
     Indication: GASTRIC DISORDER
     Dosage: 40 MG, QD
     Route: 048
     Dates: start: 2012
  3. REMICADE [Concomitant]
     Indication: RHEUMATOID ARTHRITIS
     Dosage: UNK, UNK
     Route: 042
     Dates: start: 20130520

REACTIONS (3)
  - Rheumatoid arthritis [Recovering/Resolving]
  - Impaired work ability [Recovered/Resolved]
  - Wrong technique in drug usage process [Unknown]
